FAERS Safety Report 25502101 (Version 2)
Quarter: 2025Q3

REPORT INFORMATION
  Report Type: Spontaneous
  Country: US (occurrence: US)
  Receive Date: 20250702
  Receipt Date: 20250824
  Transmission Date: 20251021
  Serious: No
  Sender: GLAXOSMITHKLINE
  Company Number: US-GLAXOSMITHKLINE-US2022AMR192066

PATIENT
  Sex: Female

DRUGS (3)
  1. ZEJULA [Suspect]
     Active Substance: NIRAPARIB
     Indication: Ovarian cancer
     Dosage: 200 MG, QD
     Dates: start: 20221212
  2. ZEJULA [Suspect]
     Active Substance: NIRAPARIB
     Dosage: 100 MG, QD
     Dates: start: 20230208
  3. ZEJULA [Suspect]
     Active Substance: NIRAPARIB
     Indication: Ovarian cancer
     Dosage: 100 MG, QD
     Dates: start: 202310

REACTIONS (15)
  - Fatigue [Unknown]
  - Asthenia [Recovering/Resolving]
  - Road traffic accident [Unknown]
  - Constipation [Unknown]
  - Laboratory test abnormal [Unknown]
  - Full blood count decreased [Recovered/Resolved]
  - Restless legs syndrome [Not Recovered/Not Resolved]
  - Middle insomnia [Unknown]
  - Nasal congestion [Unknown]
  - Upper-airway cough syndrome [Unknown]
  - Anaemia [Unknown]
  - Stomatitis [Unknown]
  - Gastrointestinal pain [Unknown]
  - Infrequent bowel movements [Unknown]
  - Cardiac disorder [Not Recovered/Not Resolved]
